FAERS Safety Report 17407267 (Version 1)
Quarter: 2020Q1

REPORT INFORMATION
  Report Type: Spontaneous
  Country: US (occurrence: US)
  Receive Date: 20200128
  Receipt Date: 20200128
  Transmission Date: 20200409
  Serious: No
  Sender: FDA-Public Use
  Company Number: None

PATIENT
  Age: 38 Year
  Sex: Male

DRUGS (2)
  1. DAPTOMYCIN 500 MG FRESENIUS KABI USA [Suspect]
     Active Substance: DAPTOMYCIN
     Indication: OSTEOMYELITIS
     Dosage: ?          OTHER ROUTE:IV?
     Dates: start: 20191228
  2. ERTAPENEM. [Concomitant]
     Active Substance: ERTAPENEM SODIUM

REACTIONS (3)
  - Myalgia [None]
  - Blood creatine phosphokinase increased [None]
  - Diarrhoea [None]

NARRATIVE: CASE EVENT DATE: 20200113
